FAERS Safety Report 10142350 (Version 1)
Quarter: 2014Q2

REPORT INFORMATION
  Report Type: Spontaneous
  Country: BR (occurrence: BR)
  Receive Date: 20140430
  Receipt Date: 20140430
  Transmission Date: 20141212
  Serious: Yes (Hospitalization)
  Sender: FDA-Public Use
  Company Number: BR-ROCHE-1391508

PATIENT
  Age: 54 Year
  Sex: Female
  Weight: 63 kg

DRUGS (3)
  1. RIVOTRIL [Suspect]
     Indication: ANXIETY
     Route: 048
  2. RIVOTRIL [Suspect]
     Indication: INSOMNIA
     Dosage: 2.5 MG/ML UNTIL 15 DROPS A DAY
     Route: 048
  3. RIVOTRIL [Suspect]
     Indication: RESTLESS LEGS SYNDROME

REACTIONS (9)
  - Benign muscle neoplasm [Unknown]
  - Alopecia [Unknown]
  - Tremor [Not Recovered/Not Resolved]
  - Therapeutic response decreased [Unknown]
  - Palpitations [Recovered/Resolved]
  - Headache [Recovered/Resolved]
  - Dyspnoea [Recovered/Resolved]
  - Nausea [Recovered/Resolved]
  - Decreased appetite [Not Recovered/Not Resolved]
